FAERS Safety Report 8522470 (Version 2)
Quarter: 2013Q4

REPORT INFORMATION
  Report Type: Spontaneous
  Country: US (occurrence: US)
  Receive Date: 20120419
  Receipt Date: 20131206
  Transmission Date: 20140711
  Serious: Yes (Death)
  Sender: FDA-Public Use
  Company Number: US-ELI_LILLY_AND_COMPANY-US201204005672

PATIENT
  Sex: 0

DRUGS (2)
  1. PEMETREXED [Suspect]
     Indication: NON-SMALL CELL LUNG CANCER
     Dosage: 500 MG/M2, EVERY21DAYS
  2. CEDIRANIB [Concomitant]
     Dosage: 30 MG, QD

REACTIONS (1)
  - Pulmonary haemorrhage [Fatal]
